FAERS Safety Report 25984423 (Version 1)
Quarter: 2025Q4

REPORT INFORMATION
  Report Type: Spontaneous
  Country: US (occurrence: None)
  Receive Date: 20251030
  Receipt Date: 20251030
  Transmission Date: 20260118
  Serious: No
  Sender: FDA-CTU
  Company Number: None

PATIENT
  Age: 54 Year
  Sex: Male

DRUGS (1)
  1. LYUMJEV KWIKPEN [Suspect]
     Active Substance: INSULIN LISPRO
     Indication: Type 1 diabetes mellitus
     Dosage: 1 INJECTION WITH MEALS SUBCUTANEOUS
     Route: 058
     Dates: start: 20240614, end: 20251030

REACTIONS (2)
  - Injection site haemorrhage [None]
  - Injection site bruising [None]

NARRATIVE: CASE EVENT DATE: 20251030
